FAERS Safety Report 20630097 (Version 1)
Quarter: 2022Q1

REPORT INFORMATION
  Report Type: Report from Study
  Country: GB (occurrence: GB)
  Receive Date: 20220324
  Receipt Date: 20220324
  Transmission Date: 20220423
  Serious: Yes (Other)
  Sender: FDA-Public Use
  Company Number: GB-NOVARTISPH-NVSC2022GB063549

PATIENT
  Sex: Male

DRUGS (2)
  1. HYRIMOZ [Suspect]
     Active Substance: ADALIMUMAB-ADAZ
     Indication: Colitis ulcerative
     Dosage: 160 MG, (WEEK 0)
     Route: 058
     Dates: start: 20220316
  2. HYRIMOZ [Suspect]
     Active Substance: ADALIMUMAB-ADAZ
     Dosage: 80 MG (WEEK 2)
     Route: 058

REACTIONS (5)
  - Syncope [Unknown]
  - Feeling hot [Unknown]
  - Dizziness [Unknown]
  - Cold sweat [Unknown]
  - Skin discolouration [Unknown]
